FAERS Safety Report 8441153-8 (Version None)
Quarter: 2012Q2

REPORT INFORMATION
  Report Type: 
  Country: None (occurrence: None)
  Receive Date: 20120615
  Receipt Date: 20110711
  Transmission Date: 20120825
  Serious: No
  Sender: FDA-Public Use
  Company Number: US-NOVEN-11US002774

PATIENT
  Sex: Female
  Weight: 113.38 kg

DRUGS (2)
  1. HYDROCODONE [Concomitant]
     Indication: SCOLIOSIS
     Dosage: AS NEEDED
     Route: 048
  2. DAYTRANA [Suspect]
     Indication: ATTENTION DEFICIT/HYPERACTIVITY DISORDER
     Dosage: 10 MG, QD MONDAY THROUGH FRIDAY, OFF ON WEEKENDS
     Route: 062
     Dates: start: 20110101

REACTIONS (4)
  - WRONG TECHNIQUE IN DRUG USAGE PROCESS [None]
  - PRODUCT QUALITY ISSUE [None]
  - OFF LABEL USE [None]
  - INFECTIOUS MONONUCLEOSIS [None]
